FAERS Safety Report 7492140-8 (Version None)
Quarter: 2011Q2

REPORT INFORMATION
  Report Type: 
  Country: None (occurrence: None)
  Receive Date: 20110511
  Receipt Date: 20110504
  Transmission Date: 20111010
  Serious: Yes (Death, Other)
  Sender: FDA-Public Use
  Company Number: 2010SP059718

PATIENT
  Age: 33 Year
  Sex: Female

DRUGS (7)
  1. SAPHRIS [Suspect]
     Indication: BIPOLAR DISORDER
     Dosage: 10 MG;BID;SL
     Route: 060
     Dates: start: 20101027, end: 20101110
  2. LUNESTA [Concomitant]
  3. LORAZEPAM [Concomitant]
  4. PREDNISONE [Concomitant]
  5. ALBUTEROL [Suspect]
     Indication: RESPIRATORY THERAPY
     Dosage: 3 DF
  6. CEPHALEXIN [Concomitant]
  7. ATIVAN [Concomitant]

REACTIONS (22)
  - SYNCOPE [None]
  - URTICARIA [None]
  - JOINT SWELLING [None]
  - TINNITUS [None]
  - PERIPHERAL COLDNESS [None]
  - EMBOLISM [None]
  - DYSPHAGIA [None]
  - PALLOR [None]
  - DIZZINESS [None]
  - PARAESTHESIA [None]
  - OEDEMA PERIPHERAL [None]
  - HEART RATE INCREASED [None]
  - LOSS OF CONSCIOUSNESS [None]
  - INCREASED TENDENCY TO BRUISE [None]
  - NAUSEA [None]
  - CONVULSION [None]
  - DYSPNOEA [None]
  - GAIT DISTURBANCE [None]
  - ARRHYTHMIA [None]
  - DRUG HYPERSENSITIVITY [None]
  - STOMATITIS [None]
  - HAEMODYNAMIC INSTABILITY [None]
